FAERS Safety Report 6087784-4 (Version None)
Quarter: 2009Q1

REPORT INFORMATION
  Report Type: 
  Country: None (occurrence: None)
  Receive Date: 20090223
  Receipt Date: 20090211
  Transmission Date: 20090719
  Serious: Yes (Other)
  Sender: FDA-Public Use
  Company Number: US-WYE-H08188909

PATIENT
  Sex: Female

DRUGS (4)
  1. EFFEXOR XR [Suspect]
     Indication: DEPRESSION
     Route: 048
     Dates: start: 20080101, end: 20090130
  2. EFFEXOR XR [Suspect]
     Indication: ANXIETY
     Dosage: ^BEGAN TO TAPER OFF^
     Route: 048
     Dates: start: 20090131, end: 20090211
  3. ADDERALL 10 [Suspect]
     Dosage: OVERDOSE AMOUNT UNSPECIFIED
  4. CLONAZEPAM [Suspect]
     Dosage: OVERDOSE AMOUNT UNSPECIFIED

REACTIONS (4)
  - INTENTIONAL OVERDOSE [None]
  - PERSONALITY DISORDER [None]
  - SUICIDE ATTEMPT [None]
  - VOMITING [None]
